FAERS Safety Report 5574840-X (Version None)
Quarter: 2007Q4

REPORT INFORMATION
  Report Type: 
  Country: None (occurrence: None)
  Receive Date: 20071221
  Receipt Date: 20071221
  Transmission Date: 20080405
  Serious: No
  Sender: FDA-Public Use
  Company Number: None

PATIENT
  Sex: Female

DRUGS (1)
  1. GEODON [Suspect]
     Indication: AFFECTIVE DISORDER
     Dosage: 40 MG AT BEDTIME PO
     Route: 048
     Dates: start: 20070510, end: 20070514

REACTIONS (4)
  - ANXIETY [None]
  - DYSKINESIA [None]
  - EXCESSIVE EYE BLINKING [None]
  - RESPIRATORY RATE INCREASED [None]
